FAERS Safety Report 8439852-7 (Version None)
Quarter: 2012Q2

REPORT INFORMATION
  Report Type: 
  Country: None (occurrence: None)
  Receive Date: 20120323
  Receipt Date: 20110929
  Transmission Date: 20120825
  Serious: Yes (Hospitalization)
  Sender: FDA-Public Use
  Company Number: 163-21880-11061558

PATIENT
  Age: 51 Year
  Sex: Male
  Weight: 101.6057 kg

DRUGS (10)
  1. MULTIVITAMIN [Concomitant]
  2. ASPIRIN [Concomitant]
  3. OMEPRAZOLE [Concomitant]
  4. DITIAZEM (DILTIAZEM) [Concomitant]
  5. ATENOLOL [Concomitant]
  6. REVLIMID [Suspect]
     Indication: MULTIPLE MYELOMA
     Dosage: 25 MG, FOR 21 DAYS, PO, 25 MG, FOR 21 DAYS, PO, 25 MG, 21 DAY CYCLE, PO
     Route: 048
     Dates: start: 20110512, end: 20110713
  7. REVLIMID [Suspect]
     Indication: MULTIPLE MYELOMA
     Dosage: 25 MG, FOR 21 DAYS, PO, 25 MG, FOR 21 DAYS, PO, 25 MG, 21 DAY CYCLE, PO
     Route: 048
     Dates: start: 20110901
  8. REVLIMID [Suspect]
     Indication: MULTIPLE MYELOMA
     Dosage: 25 MG, FOR 21 DAYS, PO, 25 MG, FOR 21 DAYS, PO, 25 MG, 21 DAY CYCLE, PO
     Route: 048
     Dates: start: 20110720
  9. ACYCLOVIR [Concomitant]
  10. DEXAMETHASONE [Concomitant]

REACTIONS (1)
  - DIVERTICULITIS [None]
